FAERS Safety Report 5373675-0 (Version None)
Quarter: 2007Q2

REPORT INFORMATION
  Report Type: 
  Country: None (occurrence: None)
  Receive Date: 20070615
  Receipt Date: 20070419
  Transmission Date: 20071010
  Serious: Yes (Other)
  Sender: FDA-Public Use
  Company Number: 200710339US

PATIENT
  Age: 70 Year
  Sex: Male

DRUGS (10)
  1. LANTUS [Suspect]
     Indication: DIABETES MELLITUS
     Dosage: 24 U
     Dates: start: 20070113
  2. OPTICLIK [Suspect]
  3. GLYBURIDE [Concomitant]
  4. PRECOSE [Concomitant]
  5. PIOGLITAZONE [Concomitant]
  6. VALSARTAN (DIOVANE) [Concomitant]
  7. CARDIZEM [Concomitant]
  8. ZOCOR [Concomitant]
  9. MOXIFLOXACIN HYDROCHLORIDE (AVELOX) [Concomitant]
  10. TUSSIN [Concomitant]

REACTIONS (1)
  - HYPERGLYCAEMIA [None]
